FAERS Safety Report 10687467 (Version 2)
Quarter: 2015Q1

REPORT INFORMATION
  Report Type: Spontaneous
  Country: US (occurrence: US)
  Receive Date: 20150102
  Receipt Date: 20150202
  Transmission Date: 20150720
  Serious: Yes (Hospitalization)
  Sender: FDA-Public Use
  Company Number: US-BAYER-2014-191274

PATIENT
  Age: 22 Year
  Sex: Female
  Weight: 70.3 kg

DRUGS (4)
  1. MIRENA [Suspect]
     Active Substance: LEVONORGESTREL
     Indication: CONTRACEPTION
     Dosage: 20 MCG/24HR, CONT
     Route: 015
     Dates: start: 20090504, end: 20111013
  2. OMEPRAZOLE. [Concomitant]
     Active Substance: OMEPRAZOLE
     Dosage: UNK
  3. ZOFRAN [Concomitant]
     Active Substance: ONDANSETRON HYDROCHLORIDE
     Indication: GASTRITIS
     Dosage: UNK
  4. TRAMADOL [Concomitant]
     Active Substance: TRAMADOL

REACTIONS (3)
  - Embedded device [None]
  - Pain [None]
  - Injury [None]

NARRATIVE: CASE EVENT DATE: 201110
